FAERS Safety Report 19406685 (Version 1)
Quarter: 2021Q2

REPORT INFORMATION
  Report Type: Spontaneous
  Country: DE (occurrence: DE)
  Receive Date: 20210611
  Receipt Date: 20210611
  Transmission Date: 20210717
  Serious: Yes (Death, Hospitalization)
  Sender: FDA-Public Use
  Company Number: DE-STRIDES ARCOLAB LIMITED-2021SP006316

PATIENT
  Age: 59 Year
  Sex: Female

DRUGS (22)
  1. PREDNISOLONE. [Suspect]
     Active Substance: PREDNISOLONE
     Indication: CONJUNCTIVITIS
     Dosage: 500 MILLIGRAM, BID ON DAY 42?46
     Route: 042
  2. BUDESONIDE. [Suspect]
     Active Substance: BUDESONIDE
     Indication: ERYTHEMA
     Dosage: ONCE A DAY TO ON DAY 71.
  3. PREDNISOLONE. [Suspect]
     Active Substance: PREDNISOLONE
     Dosage: 500 MILLIGRAM PER DAY ON DAY 85
     Route: 042
  4. PREDNISOLONE. [Suspect]
     Active Substance: PREDNISOLONE
     Indication: STOMATITIS
     Dosage: 500 MILLIGRAM PER DAY ON DAY 50
     Route: 042
  5. PREDNISOLONE. [Suspect]
     Active Substance: PREDNISOLONE
     Dosage: 80 MILLIGRAM PER DAY ON DAY 51?58
     Route: 042
  6. TOCILIZUMAB. [Concomitant]
     Active Substance: TOCILIZUMAB
     Indication: PNEUMONITIS
     Dosage: UNK
     Route: 065
  7. TACROLIMUS. [Suspect]
     Active Substance: TACROLIMUS
     Indication: PNEUMONITIS
     Dosage: 2MG 5 NG/MLBID ON DAY 56
     Route: 048
  8. TACROLIMUS. [Suspect]
     Active Substance: TACROLIMUS
     Indication: CONJUNCTIVITIS
     Dosage: 1 MILLIGRAM, BID ON DAY 61.
     Route: 048
  9. TACROLIMUS. [Suspect]
     Active Substance: TACROLIMUS
     Indication: ERYTHEMA
  10. BUDESONIDE. [Suspect]
     Active Substance: BUDESONIDE
     Indication: PNEUMONITIS
     Dosage: 250MG INHALATION 1 ML/DAY ON DAY 48
  11. ATEZOLIZUMAB. [Concomitant]
     Active Substance: ATEZOLIZUMAB
     Indication: FOLLICULAR LYMPHOMA STAGE III
     Dosage: 1200 MILLIGRAM, ON DAY 1 OF CYCLE 2?6
     Route: 065
  12. PREDNISOLONE. [Suspect]
     Active Substance: PREDNISOLONE
     Indication: PNEUMONITIS
     Dosage: 500 MILLIGRAM PER DAY ON DAY 41
     Route: 042
  13. PREDNISOLONE. [Suspect]
     Active Substance: PREDNISOLONE
     Dosage: 200 MILLIGRAM PER DAY ON DAY 90?93
     Route: 042
  14. TACROLIMUS. [Suspect]
     Active Substance: TACROLIMUS
     Indication: STOMATITIS
     Dosage: DOSE 1MG 5 NG/ML DAILY ON DAY 76.
     Route: 048
  15. BENDAMUSTINE [Concomitant]
     Active Substance: BENDAMUSTINE
     Indication: FOLLICULAR LYMPHOMA STAGE III
     Dosage: UNK
     Route: 065
     Dates: start: 2017
  16. OBINUTUZUMAB. [Concomitant]
     Active Substance: OBINUTUZUMAB
     Indication: FOLLICULAR LYMPHOMA STAGE III
     Dosage: 1000 MILLIGRAM, CYCLICAL (DAY 1, 8, AND 15 CYCLE 1; DAY 1 OF CYCLE 2?6)
     Route: 065
  17. POLATUZUMAB VEDOTIN. [Concomitant]
     Active Substance: POLATUZUMAB VEDOTIN
     Indication: FOLLICULAR LYMPHOMA STAGE III
     Dosage: 1.8 MILLIGRAM, ON DAY 1 OF CYCLE 1?6
     Route: 065
  18. PREDNISOLONE. [Suspect]
     Active Substance: PREDNISOLONE
     Indication: ERYTHEMA
     Dosage: 20 MILLIGRAM PER DAY ON DAY 47?48
     Route: 048
  19. PREDNISOLONE. [Suspect]
     Active Substance: PREDNISOLONE
     Dosage: 60 MILLIGRAM PER DAY ON DAY 76
     Route: 042
  20. PREDNISOLONE. [Suspect]
     Active Substance: PREDNISOLONE
     Dosage: 100 MILLIGRAM PER DAY ON DAY 82
     Route: 042
  21. BUDESONIDE. [Suspect]
     Active Substance: BUDESONIDE
     Indication: STOMATITIS
     Dosage: INCREASED TO TWICE A DAY ON DAY 86.
  22. BUDESONIDE. [Suspect]
     Active Substance: BUDESONIDE
     Indication: CONJUNCTIVITIS
     Dosage: INCREASED TO TWICE A DAY ON DAY 61,

REACTIONS (5)
  - Off label use [Unknown]
  - Transaminases increased [Unknown]
  - Pulmonary embolism [Unknown]
  - Cytomegalovirus infection [Unknown]
  - Bronchopulmonary aspergillosis [Fatal]
